FAERS Safety Report 13179553 (Version 1)
Quarter: 2017Q1

REPORT INFORMATION
  Report Type: Spontaneous
  Country: FR (occurrence: FR)
  Receive Date: 20170202
  Receipt Date: 20170202
  Transmission Date: 20170428
  Serious: Yes (Other)
  Sender: FDA-Public Use
  Company Number: FR-TEVA-733624ROM

PATIENT
  Age: 60 Year
  Sex: Male

DRUGS (6)
  1. ALLOPURINOL TEVA 100 MG [Suspect]
     Active Substance: ALLOPURINOL
     Indication: BLOOD URIC ACID
     Dosage: 1 DOSAGE FORMS DAILY;
     Route: 048
     Dates: start: 20161012, end: 20161016
  2. COTAREG [Concomitant]
     Active Substance: HYDROCHLOROTHIAZIDE\VALSARTAN
  3. PLAVIX [Concomitant]
     Active Substance: CLOPIDOGREL BISULFATE
  4. ZANIDIP 20 MG [Concomitant]
  5. TAHOR 40 MG [Concomitant]
  6. SECTAL 200 MG [Concomitant]

REACTIONS (6)
  - Intermittent claudication [Recovered/Resolved]
  - Discomfort [Recovered/Resolved]
  - Erythema [Recovered/Resolved]
  - Muscle spasms [Recovered/Resolved]
  - Pruritus [Recovered/Resolved]
  - Insomnia [None]

NARRATIVE: CASE EVENT DATE: 20161012
